FAERS Safety Report 4764251-9 (Version None)
Quarter: 2005Q3

REPORT INFORMATION
  Report Type: 
  Country: None (occurrence: None)
  Receive Date: 20050907
  Receipt Date: 20050819
  Transmission Date: 20060218
  Serious: Yes (Life-Threatening, Hospitalization)
  Sender: FDA-Public Use
  Company Number: FACT0500548

PATIENT
  Age: 69 Year
  Sex: Male

DRUGS (1)
  1. FACTIVE [Suspect]
     Indication: RESPIRATORY TRACT INFECTION BACTERIAL
     Dosage: 320 MG, QD, ORAL
     Route: 048
     Dates: start: 20050804, end: 20050804

REACTIONS (1)
  - HYPERSENSITIVITY [None]
